FAERS Safety Report 16168797 (Version 1)
Quarter: 2019Q2

REPORT INFORMATION
  Report Type: Spontaneous
  Country: US (occurrence: US)
  Receive Date: 20190408
  Receipt Date: 20190408
  Transmission Date: 20190711
  Serious: Yes (Death, Hospitalization, Other)
  Sender: FDA-Public Use
  Company Number: US-ENDO PHARMACEUTICALS INC-2019-102301

PATIENT
  Age: 38 Year
  Sex: Female
  Weight: 146.94 kg

DRUGS (8)
  1. ACETAMINOPHEN. [Suspect]
     Active Substance: ACETAMINOPHEN
     Indication: PRODUCT USED FOR UNKNOWN INDICATION
     Dosage: UNK UNKNOWN, UNKNOWN
     Route: 065
  2. OPANA [Suspect]
     Active Substance: OXYMORPHONE HYDROCHLORIDE
     Indication: PRODUCT USED FOR UNKNOWN INDICATION
     Dosage: UNK UNKNOWN, UNKNOWN
     Route: 065
  3. OXYCONTIN [Suspect]
     Active Substance: OXYCODONE HYDROCHLORIDE
     Indication: PRODUCT USED FOR UNKNOWN INDICATION
     Dosage: UNK UNKNOWN, UNKNOWN
     Route: 065
  4. ROXICODONE [Suspect]
     Active Substance: OXYCODONE HYDROCHLORIDE
     Indication: PRODUCT USED FOR UNKNOWN INDICATION
     Dosage: UNK UNKNOWN, UNKNOWN
     Route: 065
  5. PERCODAN [Suspect]
     Active Substance: ASPIRIN\OXYCODONE HYDROCHLORIDE
     Indication: PRODUCT USED FOR UNKNOWN INDICATION
     Dosage: UNK UNKNOWN, UNKNOWN
     Route: 065
  6. NAPROXEN. [Suspect]
     Active Substance: NAPROXEN
     Indication: PRODUCT USED FOR UNKNOWN INDICATION
     Dosage: UNK UNKNOWN, UNKNOWN
     Route: 065
  7. ATIVAN [Suspect]
     Active Substance: LORAZEPAM
     Indication: PRODUCT USED FOR UNKNOWN INDICATION
     Dosage: UNK UNKNOWN, UNKNOWN
     Route: 065
  8. NUMORPHAN [Suspect]
     Active Substance: OXYMORPHONE HYDROCHLORIDE
     Indication: PRODUCT USED FOR UNKNOWN INDICATION
     Dosage: UNK UNKNOWN, UNKNOWN
     Route: 065

REACTIONS (22)
  - Pneumonia [Unknown]
  - Cardiac arrest [Unknown]
  - Toxicity to various agents [Fatal]
  - Pulmonary hypoplasia [Fatal]
  - Acute respiratory failure [Unknown]
  - Fall [Unknown]
  - Obesity [Fatal]
  - Ankle fracture [Unknown]
  - Cellulitis [Unknown]
  - Pulmonary oedema [Unknown]
  - Cor pulmonale [Fatal]
  - Injury [Unknown]
  - Pneumomediastinum [Unknown]
  - Lung disorder [Unknown]
  - Acute respiratory failure [Fatal]
  - Cardiac failure congestive [Fatal]
  - Sepsis [Unknown]
  - Pneumothorax [Unknown]
  - Brain oedema [Unknown]
  - Urinary tract infection [Unknown]
  - Hypertensive cardiomyopathy [Fatal]
  - Eosinophilia [Unknown]

NARRATIVE: CASE EVENT DATE: 2015
